FAERS Safety Report 19089332 (Version 1)
Quarter: 2021Q2

REPORT INFORMATION
  Report Type: Spontaneous
  Country: JP (occurrence: JP)
  Receive Date: 20210403
  Receipt Date: 20210403
  Transmission Date: 20210717
  Serious: Yes (Other)
  Sender: FDA-Public Use
  Company Number: JP-LUPIN PHARMACEUTICALS INC.-2021-04141

PATIENT
  Age: 6 Decade
  Sex: Female

DRUGS (4)
  1. TRAMADOL HYDROCHLORIDE. [Suspect]
     Active Substance: TRAMADOL HYDROCHLORIDE
     Indication: PAIN
     Dosage: UNK
     Route: 048
  2. CLONAZEPAM. [Suspect]
     Active Substance: CLONAZEPAM
     Indication: DYSTONIA
     Dosage: 3 MILLIGRAM
     Route: 048
  3. LIDOCAINE. [Suspect]
     Active Substance: LIDOCAINE
     Indication: DYSTONIA
     Dosage: UNK
     Route: 048
  4. BOTULINUM TOXIN [Concomitant]
     Active Substance: BOTULINUM TOXIN NOS
     Indication: DYSTONIA
     Dosage: UNK?5?10 IU; INJECTIONS INTO THE RIGHT POSTERIOR AURICULAR MUSCLES
     Route: 030

REACTIONS (1)
  - Drug ineffective [Unknown]
